FAERS Safety Report 7436821-0 (Version None)
Quarter: 2011Q2

REPORT INFORMATION
  Report Type: 
  Country: None (occurrence: None)
  Receive Date: 20110426
  Receipt Date: 20101201
  Transmission Date: 20111010
  Serious: Yes (Other)
  Sender: FDA-Public Use
  Company Number: US-BAYER-201031859NA

PATIENT
  Age: 26 Year
  Sex: Female
  Weight: 80.726 kg

DRUGS (3)
  1. YAZ [Suspect]
     Indication: CONTRACEPTION
     Dosage: UNK UNK, UNK
     Route: 065
     Dates: start: 20080401, end: 20091101
  2. AXERT [Concomitant]
     Dosage: UNK
     Dates: start: 20000101
  3. ALBUTEROL [Concomitant]
     Dosage: UNK
     Dates: start: 20000101

REACTIONS (4)
  - BILIARY DYSKINESIA [None]
  - PAIN [None]
  - CHOLECYSTITIS CHRONIC [None]
  - EMOTIONAL DISTRESS [None]
